FAERS Safety Report 23985259 (Version 1)
Quarter: 2024Q2

REPORT INFORMATION
  Report Type: Spontaneous
  Country: UZ (occurrence: UZ)
  Receive Date: 20240618
  Receipt Date: 20240618
  Transmission Date: 20240716
  Serious: Yes (Death, Other)
  Sender: FDA-Public Use
  Company Number: UZ-JNJFOC-20240638430

PATIENT
  Age: 78 Year
  Sex: Female
  Weight: 40 kg

DRUGS (6)
  1. SIRTURO [Suspect]
     Active Substance: BEDAQUILINE FUMARATE
     Indication: Pulmonary tuberculosis
     Dosage: 400
     Route: 048
     Dates: start: 20231205, end: 20231219
  2. SIRTURO [Suspect]
     Active Substance: BEDAQUILINE FUMARATE
     Dosage: 200
     Route: 048
     Dates: start: 20231220
  3. MOXIFLOXACIN [Suspect]
     Active Substance: MOXIFLOXACIN
     Indication: Pulmonary tuberculosis
     Dosage: 400
     Route: 065
     Dates: start: 20231205
  4. LINEZOLID [Suspect]
     Active Substance: LINEZOLID
     Indication: Pulmonary tuberculosis
     Dosage: 600
     Route: 065
     Dates: start: 20231205
  5. CLOFAZIMINE [Suspect]
     Active Substance: CLOFAZIMINE
     Indication: Pulmonary tuberculosis
     Dosage: 100
     Route: 065
     Dates: start: 20231205, end: 20231220
  6. PRETOMANID [Suspect]
     Active Substance: PRETOMANID
     Indication: Pulmonary tuberculosis
     Dosage: 200
     Route: 065
     Dates: start: 20231220

REACTIONS (14)
  - Cardiac failure [Fatal]
  - Haematemesis [Unknown]
  - Nausea [Unknown]
  - Abdominal pain [Unknown]
  - Asthenia [Unknown]
  - Pallor [Unknown]
  - Peripheral coldness [Unknown]
  - Somnolence [Unknown]
  - Agitation [Unknown]
  - Oedema peripheral [Unknown]
  - Petechiae [Unknown]
  - Eating disorder [Unknown]
  - Restlessness [Unknown]
  - Sleep disorder [Unknown]
